FAERS Safety Report 16118109 (Version 1)
Quarter: 2019Q1

REPORT INFORMATION
  Report Type: Spontaneous
  Country: DK (occurrence: DK)
  Receive Date: 20190326
  Receipt Date: 20190326
  Transmission Date: 20190418
  Serious: Yes (Other)
  Sender: FDA-Public Use
  Company Number: PHHY2019DK053786

PATIENT
  Age: 37 Year
  Sex: Female

DRUGS (7)
  1. OXAPAX [Suspect]
     Active Substance: OXAZEPAM
     Dosage: 7.5 MG, UNK (DOSIS: 1/2 TABLET VED BEHOV. MAX 3 TABLETTER DAGLIGT. STYRKE: 15 MG)
     Route: 048
     Dates: start: 20160302
  2. OXAPAX [Suspect]
     Active Substance: OXAZEPAM
     Indication: SEDATION
     Dosage: 7.5 MG, UNK (DOSIS: 1/2 TABLET VED BEHOV. MAX 3 TABLETTER DAGLIGT. STYRKE: 15 MG)
     Route: 048
     Dates: start: 20150810
  3. QUETIAPIN SANDOZ [Concomitant]
     Active Substance: QUETIAPINE
     Indication: PSYCHOTIC DISORDER
     Dosage: UNK
     Route: 065
     Dates: start: 20150211, end: 20160302
  4. SEROQUEL [Suspect]
     Active Substance: QUETIAPINE FUMARATE
     Indication: PSYCHOTIC DISORDER
     Dosage: UNK (DOSIS: START 25 MG, OPTRAPPET TIL 200 MG FRA APR2015)
     Route: 048
     Dates: start: 20150211, end: 20160302
  5. QUETIAPIN ACTAVIS [Suspect]
     Active Substance: QUETIAPINE
     Indication: PSYCHOTIC DISORDER
     Dosage: UNK (UNK (DOSIS: START 25 MG, OPTRAPPET TIL 200 MG FRA APR2015))
     Route: 048
     Dates: start: 20150211, end: 20160302
  6. QUETIAPINA ORION [Suspect]
     Active Substance: QUETIAPINE FUMARATE
     Indication: PSYCHOTIC DISORDER
     Dosage: UNK (DOSIS: START 25 MG, OPTRAPPET TIL 200 MG FRA APR2015)
     Route: 048
     Dates: start: 20150211, end: 20160302
  7. QUETIAPIN ACCORD [Suspect]
     Active Substance: QUETIAPINE
     Indication: PSYCHOTIC DISORDER
     Dosage: UNK (DOSIS: START 25 MG, OPTRAPPET TIL 200 MG FRA APR2015)
     Route: 048
     Dates: start: 20150211, end: 20160302

REACTIONS (16)
  - Hyporeflexia [Unknown]
  - Balance disorder [Unknown]
  - Somnolence [Unknown]
  - Fall [Recovered/Resolved with Sequelae]
  - Dyskinesia [Unknown]
  - Confusional state [Unknown]
  - Pain [Unknown]
  - Joint swelling [Unknown]
  - Vision blurred [Unknown]
  - Scar [Not Recovered/Not Resolved]
  - Varicose vein [Not Recovered/Not Resolved]
  - Gait disturbance [Unknown]
  - Joint dislocation [Not Recovered/Not Resolved]
  - Arthralgia [Unknown]
  - Spider vein [Not Recovered/Not Resolved]
  - Dizziness [Recovered/Resolved]

NARRATIVE: CASE EVENT DATE: 201607
